FAERS Safety Report 4441612-9 (Version None)
Quarter: 2004Q3

REPORT INFORMATION
  Report Type: 
  Country: None (occurrence: None)
  Receive Date: 20040907
  Receipt Date: 20040826
  Transmission Date: 20050211
  Serious: Yes (Hospitalization)
  Sender: FDA-Public Use
  Company Number: PHEH2004US09320

PATIENT
  Age: 72 Year
  Sex: Male

DRUGS (3)
  1. ZOMETA [Suspect]
     Indication: METASTASES TO BONE
     Dosage: UNK, ONCE/SINGLE
     Route: 042
     Dates: start: 20040810
  2. LUPRON [Concomitant]
  3. CASODEX [Concomitant]

REACTIONS (9)
  - ANOREXIA [None]
  - DIPLOPIA [None]
  - EYE DISORDER [None]
  - HEADACHE [None]
  - INFLUENZA LIKE ILLNESS [None]
  - PAIN [None]
  - PAIN IN EXTREMITY [None]
  - PALLOR [None]
  - PYREXIA [None]
